FAERS Safety Report 14757139 (Version 2)
Quarter: 2018Q2

REPORT INFORMATION
  Report Type: Spontaneous
  Country: US (occurrence: US)
  Receive Date: 20180413
  Receipt Date: 20180428
  Transmission Date: 20180711
  Serious: Yes (Other)
  Sender: FDA-Public Use
  Company Number: US-TEVA-2018-US-878881

PATIENT
  Age: 57 Year
  Sex: Female
  Weight: 59 kg

DRUGS (3)
  1. QVAR [Suspect]
     Active Substance: BECLOMETHASONE DIPROPIONATE
     Route: 065
  2. QVAR REDIHALER [Suspect]
     Active Substance: BECLOMETHASONE DIPROPIONATE
     Indication: ASTHMA
     Dosage: ONE TO TWO PUFFS TWICE DAILY
     Route: 065
     Dates: start: 20180402, end: 20180403
  3. VENTOLIN [Concomitant]
     Active Substance: ALBUTEROL SULFATE

REACTIONS (14)
  - Oesophageal pain [Unknown]
  - Pharyngitis [Unknown]
  - Malaise [Unknown]
  - Oropharyngeal pain [Unknown]
  - Rhinorrhoea [Unknown]
  - Dyspnoea [Unknown]
  - Burn oral cavity [Unknown]
  - Throat irritation [Unknown]
  - Medication residue present [Unknown]
  - Burn oesophageal [Unknown]
  - Pulmonary pain [Unknown]
  - Glossitis [Unknown]
  - Glossodynia [Unknown]
  - Product physical issue [Unknown]

NARRATIVE: CASE EVENT DATE: 20180402
